FAERS Safety Report 19582951 (Version 2)
Quarter: 2021Q3

REPORT INFORMATION
  Report Type: Spontaneous
  Country: US (occurrence: US)
  Receive Date: 20210720
  Receipt Date: 20210727
  Transmission Date: 20211014
  Serious: Yes (Other)
  Sender: FDA-Public Use
  Company Number: US-SUNOVION-2021SUN002678

PATIENT
  Sex: Male

DRUGS (3)
  1. DILANTIN [Concomitant]
     Active Substance: PHENYTOIN
     Dosage: UNK
  2. LATUDA [Suspect]
     Active Substance: LURASIDONE HYDROCHLORIDE
     Indication: SCHIZOPHRENIA
     Dosage: 60 MG
     Route: 048
  3. KEPPRA [Concomitant]
     Active Substance: LEVETIRACETAM
     Dosage: UNK

REACTIONS (3)
  - Logorrhoea [Unknown]
  - Hallucination, auditory [Not Recovered/Not Resolved]
  - Headache [Not Recovered/Not Resolved]
